FAERS Safety Report 7260575-4 (Version None)
Quarter: 2011Q1

REPORT INFORMATION
  Report Type: 
  Country: None (occurrence: None)
  Receive Date: 20110130
  Receipt Date: 20101221
  Transmission Date: 20110831
  Serious: Yes (Other)
  Sender: FDA-Public Use
  Company Number: US-ABBOTT-10P-163-0692902-00

PATIENT
  Sex: Female

DRUGS (12)
  1. LISINOPRIL [Concomitant]
     Indication: HYPERTENSION
     Route: 048
  2. ADVAIR [Concomitant]
     Indication: ASTHMA
     Route: 055
  3. TYLENOL WITH CODEIN #4 [Concomitant]
     Indication: PAIN
     Route: 048
  4. FOLIC ACID [Concomitant]
     Indication: PRODUCT USED FOR UNKNOWN INDICATION
     Route: 048
  5. NABUMETONE [Concomitant]
     Indication: INFLAMMATION
     Route: 048
  6. DETROL LA [Concomitant]
     Indication: URINARY INCONTINENCE
     Route: 048
  7. SINGULAIR [Concomitant]
     Indication: ASTHMA
     Route: 048
  8. SEROQUEL [Concomitant]
     Indication: INSOMNIA
     Route: 048
  9. HUMIRA [Suspect]
     Indication: RHEUMATOID ARTHRITIS
     Route: 058
     Dates: start: 20080101
  10. NEXIUM [Concomitant]
     Indication: GASTROOESOPHAGEAL REFLUX DISEASE
     Route: 048
  11. ASPIRIN [Concomitant]
     Indication: CARDIAC DISORDER
     Route: 048
  12. LEFLUNOMIDE [Concomitant]
     Indication: RHEUMATOID ARTHRITIS
     Route: 048

REACTIONS (6)
  - UNEVALUABLE EVENT [None]
  - PERICARDITIS [None]
  - INJECTION SITE PAIN [None]
  - DYSPNOEA [None]
  - INJECTION SITE HAEMATOMA [None]
  - CHEST PAIN [None]
